FAERS Safety Report 12162273 (Version 1)
Quarter: 2016Q1

REPORT INFORMATION
  Report Type: Spontaneous
  Country: US (occurrence: US)
  Receive Date: 20160309
  Receipt Date: 20160309
  Transmission Date: 20160526
  Serious: No
  Sender: FDA-Public Use
  Company Number: US-009507513-1602USA012203

PATIENT

DRUGS (2)
  1. BELSOMRA [Suspect]
     Active Substance: SUVOREXANT
     Dosage: 20MG
  2. BELSOMRA [Suspect]
     Active Substance: SUVOREXANT
     Dosage: 10MG

REACTIONS (2)
  - Feeling abnormal [Unknown]
  - Adverse event [Unknown]
